FAERS Safety Report 24344624 (Version 1)
Quarter: 2024Q3

REPORT INFORMATION
  Report Type: Spontaneous
  Country: FR (occurrence: FR)
  Receive Date: 20240920
  Receipt Date: 20240920
  Transmission Date: 20241017
  Serious: Yes (Hospitalization)
  Sender: ABBVIE
  Company Number: None

PATIENT
  Age: 80 Year
  Sex: Male
  Weight: 79 kg

DRUGS (3)
  1. AVIBACTAM SODIUM\CEFTAZIDIME [Suspect]
     Active Substance: AVIBACTAM SODIUM\CEFTAZIDIME
     Indication: Arthritis infective
     Dosage: 6 G, 1X/DAY
     Route: 042
     Dates: start: 20240131
  2. LEVOFLOXACIN [Suspect]
     Active Substance: LEVOFLOXACIN
     Indication: Arthritis infective
     Dosage: 500 MG, 1X/DAY
     Route: 048
     Dates: start: 20240209
  3. AZACTAM [Suspect]
     Active Substance: AZTREONAM
     Indication: Arthritis infective
     Dosage: 4 G, 1X/DAY
     Route: 042
     Dates: start: 20240131

REACTIONS (2)
  - Gastric ulcer [Recovering/Resolving]
  - Off label use [Unknown]

NARRATIVE: CASE EVENT DATE: 20240131
